FAERS Safety Report 8885266 (Version 1)
Quarter: 2012Q4

REPORT INFORMATION
  Report Type: 
  Country: US (occurrence: US)
  Receive Date: 20121102
  Receipt Date: 20121102
  Transmission Date: 20130627
  Serious: No
  Sender: FDA-Public Use
  Company Number: US-PFIZER INC-2012268665

PATIENT
  Age: 51 Year
  Sex: Female
  Weight: 79.5 kg

DRUGS (4)
  1. METAXALONE [Suspect]
     Dosage: UNK
  2. AMOXICILLIN TRIHYDRATE [Suspect]
     Dosage: UNK
  3. DEXTROSE\WATER [Suspect]
     Dosage: UNK
  4. POTASSIUM CLAVULANATE [Suspect]
     Dosage: UNK

REACTIONS (1)
  - Drug hypersensitivity [Unknown]
